FAERS Safety Report 5093617-5 (Version None)
Quarter: 2006Q3

REPORT INFORMATION
  Report Type: 
  Country: None (occurrence: None)
  Receive Date: 20060829
  Receipt Date: 20060822
  Transmission Date: 20061208
  Serious: Yes (Other)
  Sender: FDA-Public Use
  Company Number: S06-USA-03297-01

PATIENT
  Age: 44 Year
  Sex: Female

DRUGS (2)
  1. CAMPRAL [Suspect]
     Indication: ALCOHOLISM
     Dosage: 666 MG TID PO
     Route: 048
     Dates: start: 20050801
  2. NEURONTIN [Concomitant]

REACTIONS (3)
  - ALCOHOL POISONING [None]
  - DRUG INEFFECTIVE [None]
  - IMPRISONMENT [None]
